FAERS Safety Report 6428895-0 (Version None)
Quarter: 2009Q4

REPORT INFORMATION
  Report Type: 
  Country: None (occurrence: None)
  Receive Date: 20091104
  Receipt Date: 20091104
  Transmission Date: 20100525
  Serious: Yes (Other)
  Sender: FDA-Public Use
  Company Number: None

PATIENT
  Sex: Female
  Weight: 86.1834 kg

DRUGS (1)
  1. ALBUTEROL SULFATE AUTOHALER [Suspect]
     Indication: BRONCHITIS
     Dosage: 1 PUFF, PO
     Route: 048

REACTIONS (5)
  - ASTHENIA [None]
  - DIPLOPIA [None]
  - IMMOBILE [None]
  - MOTOR DYSFUNCTION [None]
  - MUSCLE RIGIDITY [None]
